FAERS Safety Report 7467155-6 (Version None)
Quarter: 2011Q2

REPORT INFORMATION
  Report Type: 
  Country: None (occurrence: None)
  Receive Date: 20110509
  Receipt Date: 20110412
  Transmission Date: 20111010
  Serious: Yes (Hospitalization, Other)
  Sender: FDA-Public Use
  Company Number: US-BAYER-201041504NA

PATIENT
  Age: 26 Year
  Sex: Female
  Weight: 53 kg

DRUGS (7)
  1. DOXYCYCLINE [DOXYCYCLINE] [Concomitant]
  2. FLUCONAZOLE [Concomitant]
  3. ZERTEC [Concomitant]
  4. YASMIN [Suspect]
     Indication: ACNE
     Dosage: UNK
     Dates: start: 20080101
  5. MOTRIN [Concomitant]
  6. ALLOVERT [Concomitant]
  7. ALBUTEROL [Concomitant]

REACTIONS (2)
  - TOTAL LUNG CAPACITY DECREASED [None]
  - PULMONARY EMBOLISM [None]
